FAERS Safety Report 20537273 (Version 1)
Quarter: 2022Q1

REPORT INFORMATION
  Report Type: Spontaneous
  Country: US (occurrence: US)
  Receive Date: 20220302
  Receipt Date: 20220302
  Transmission Date: 20220423
  Serious: Yes (Life-Threatening)
  Sender: FDA-Public Use
  Company Number: US-BAYER-2022A030485

PATIENT
  Age: 80 Year
  Sex: Female

DRUGS (3)
  1. ASPIRIN [Interacting]
     Active Substance: ASPIRIN
  2. CLOPIDOGREL [Interacting]
     Active Substance: CLOPIDOGREL BISULFATE
  3. APIXABAN [Interacting]
     Active Substance: APIXABAN

REACTIONS (3)
  - Rectal haemorrhage [None]
  - Labelled drug-drug interaction medication error [None]
  - Contraindicated product administered [None]
